FAERS Safety Report 21054354 (Version 1)
Quarter: 2022Q3

REPORT INFORMATION
  Report Type: Spontaneous
  Country: ES (occurrence: ES)
  Receive Date: 20220707
  Receipt Date: 20220707
  Transmission Date: 20221027
  Serious: Yes (Other)
  Sender: FDA-Public Use
  Company Number: None

PATIENT
  Age: 78 Year
  Sex: Female

DRUGS (3)
  1. PRAVASTATIN [Suspect]
     Active Substance: PRAVASTATIN
     Indication: Product used for unknown indication
     Dosage: UNK
     Route: 065
     Dates: start: 2010, end: 20211117
  2. INFLUENZA VIRUS VACCINE [Suspect]
     Active Substance: INFLUENZA VIRUS VACCINE
     Indication: Prophylaxis
     Dosage: UNK, TOTAL
     Route: 065
     Dates: start: 20211116, end: 20211116
  3. COMIRNATY [Suspect]
     Active Substance: TOZINAMERAN
     Indication: COVID-19 immunisation
     Dosage: 0.3 MILLILITER, TOTAL (DOSE3)
     Route: 065
     Dates: start: 20211116, end: 20211116

REACTIONS (2)
  - Hepatitis cholestatic [Recovered/Resolved]
  - Eosinophilia [Recovered/Resolved]

NARRATIVE: CASE EVENT DATE: 20211117
